FAERS Safety Report 8105021-3 (Version None)
Quarter: 2012Q1

REPORT INFORMATION
  Report Type: 
  Country: None (occurrence: None)
  Receive Date: 20120201
  Receipt Date: 20120126
  Transmission Date: 20120608
  Serious: Yes (Other)
  Sender: FDA-Public Use
  Company Number: JP-GLAXOSMITHKLINE-B0778397A

PATIENT

DRUGS (1)
  1. ALKERAN [Suspect]
     Indication: INTRAOCULAR RETINOBLASTOMA
     Dosage: 2.3MG CUMULATIVE DOSE
     Route: 031

REACTIONS (1)
  - RHABDOMYOSARCOMA [None]
